FAERS Safety Report 20087688 (Version 2)
Quarter: 2022Q1

REPORT INFORMATION
  Report Type: Spontaneous
  Country: BR (occurrence: BR)
  Receive Date: 20211118
  Receipt Date: 20220107
  Transmission Date: 20220423
  Serious: Yes (Other)
  Sender: FDA-Public Use
  Company Number: BR-BAYER-2021A250927

PATIENT

DRUGS (2)
  1. EYLEA [Suspect]
     Active Substance: AFLIBERCEPT
     Indication: Retinal neovascularisation
     Dosage: FIRST DOSE
  2. EYLEA [Suspect]
     Active Substance: AFLIBERCEPT
     Dosage: 1 DF, ONCE, SECOND DOSE RECEIVED
     Dates: start: 20211108, end: 20211108

REACTIONS (4)
  - Blindness [Not Recovered/Not Resolved]
  - Iridocyclitis [Not Recovered/Not Resolved]
  - Vitritis [Not Recovered/Not Resolved]
  - Multiple use of single-use product [Unknown]

NARRATIVE: CASE EVENT DATE: 20211108
